FAERS Safety Report 17985133 (Version 7)
Quarter: 2024Q2

REPORT INFORMATION
  Report Type: Report from Study
  Country: US (occurrence: US)
  Receive Date: 20200706
  Receipt Date: 20240528
  Transmission Date: 20240716
  Serious: Yes (Other)
  Sender: FDA-Public Use
  Company Number: US-SHIRE-US202021553

PATIENT
  Sex: Female
  Weight: 85.71 kg

DRUGS (53)
  1. HUMAN IMMUNOGLOBULIN G [Suspect]
     Active Substance: HUMAN IMMUNOGLOBULIN G
     Indication: Immunodeficiency
     Dosage: 65 GRAM, Q3WEEKS
     Route: 042
     Dates: start: 20060918
  2. HUMAN IMMUNOGLOBULIN G [Suspect]
     Active Substance: HUMAN IMMUNOGLOBULIN G
     Indication: Staphylococcal infection
     Dosage: 60 GRAM, Q3WEEKS
     Route: 042
     Dates: start: 20130613
  3. HUMAN IMMUNOGLOBULIN G [Suspect]
     Active Substance: HUMAN IMMUNOGLOBULIN G
     Indication: Acute sinusitis
  4. HUMAN IMMUNOGLOBULIN G [Suspect]
     Active Substance: HUMAN IMMUNOGLOBULIN G
     Indication: Selective IgG subclass deficiency
  5. ATIVAN [Concomitant]
     Active Substance: LORAZEPAM
  6. TESTOSTERONE [Concomitant]
     Active Substance: TESTOSTERONE
  7. PRAMIPEXOLE DIHYDROCHLORIDE [Concomitant]
     Active Substance: PRAMIPEXOLE DIHYDROCHLORIDE
     Dosage: UNK
     Route: 065
  8. PFIZER-BIONTECH COVID-19 VACCINE [Concomitant]
     Active Substance: TOZINAMERAN
  9. EPINEPHRINE [Concomitant]
     Active Substance: EPINEPHRINE
  10. SODIUM CHLORIDE [Concomitant]
     Active Substance: SODIUM CHLORIDE
  11. OXYCODONE AND ACETAMINOPHEN [Concomitant]
     Active Substance: ACETAMINOPHEN\OXYCODONE HYDROCHLORIDE
  12. ACETAMINOPHEN [Concomitant]
     Active Substance: ACETAMINOPHEN
  13. SODIUM CHLORIDE [Concomitant]
     Active Substance: SODIUM CHLORIDE
  14. MAXALT [Concomitant]
     Active Substance: RIZATRIPTAN BENZOATE
  15. WELCHOL [Concomitant]
     Active Substance: COLESEVELAM HYDROCHLORIDE
  16. SYNTHROID [Concomitant]
     Active Substance: LEVOTHYROXINE SODIUM
  17. LYRICA [Concomitant]
     Active Substance: PREGABALIN
  18. VITAMIN E [Concomitant]
     Active Substance: .ALPHA.-TOCOPHEROL
  19. NEURONTIN [Concomitant]
     Active Substance: GABAPENTIN
  20. TRULICITY [Concomitant]
     Active Substance: DULAGLUTIDE
  21. SINGULAIR [Concomitant]
     Active Substance: MONTELUKAST SODIUM
  22. LEXAPRO [Concomitant]
     Active Substance: ESCITALOPRAM OXALATE
  23. PROAIR HFA [Concomitant]
     Active Substance: ALBUTEROL SULFATE
  24. NAPROXEN [Concomitant]
     Active Substance: NAPROXEN
  25. DUTASTERIDE [Concomitant]
     Active Substance: DUTASTERIDE
     Dosage: UNK
     Route: 065
  26. PROGESTERONE [Concomitant]
     Active Substance: PROGESTERONE
  27. METFORMIN HYDROCHLORIDE [Concomitant]
     Active Substance: METFORMIN HYDROCHLORIDE
  28. COLACE [Concomitant]
     Active Substance: DOCUSATE SODIUM
     Dosage: UNK
     Route: 065
  29. LISINOPRIL [Concomitant]
     Active Substance: LISINOPRIL
     Dosage: UNK
  30. ROBINUL [Concomitant]
     Active Substance: GLYCOPYRROLATE
  31. VALIUM [Concomitant]
     Active Substance: DIAZEPAM
  32. APLENZIN [Concomitant]
     Active Substance: BUPROPION HYDROBROMIDE
  33. AMARYL [Concomitant]
     Active Substance: GLIMEPIRIDE
  34. FENOFIBRATE [Concomitant]
     Active Substance: FENOFIBRATE
  35. ZANTAC [Concomitant]
     Active Substance: RANITIDINE HYDROCHLORIDE
  36. MINIVELLE [Concomitant]
     Active Substance: ESTRADIOL
  37. BIOTIN [Concomitant]
     Active Substance: BIOTIN
  38. ALDACTONE [Concomitant]
     Active Substance: SPIRONOLACTONE
  39. ALLEGRA [Concomitant]
     Active Substance: FEXOFENADINE HYDROCHLORIDE
  40. AVIANE [Concomitant]
     Active Substance: ETHINYL ESTRADIOL\LEVONORGESTREL
  41. REXULTI [Concomitant]
     Active Substance: BREXPIPRAZOLE
  42. METHOCARBAMOL [Concomitant]
     Active Substance: METHOCARBAMOL
  43. TRINTELLIX [Concomitant]
     Active Substance: VORTIOXETINE HYDROBROMIDE
  44. XYZAL [Concomitant]
     Active Substance: LEVOCETIRIZINE DIHYDROCHLORIDE
  45. PEPCID [Concomitant]
     Active Substance: FAMOTIDINE
  46. PRISTIQ EXTENDED-RELEASE [Concomitant]
     Active Substance: DESVENLAFAXINE SUCCINATE
     Dosage: UNK
  47. MIRAPEX [Concomitant]
     Active Substance: PRAMIPEXOLE DIHYDROCHLORIDE
     Dosage: UNK
  48. PANTOPRAZOLE SODIUM [Concomitant]
     Active Substance: PANTOPRAZOLE SODIUM
     Dosage: UNK
  49. DIPHENHYDRAMINE HYDROCHLORIDE [Concomitant]
     Active Substance: DIPHENHYDRAMINE HYDROCHLORIDE
     Dosage: UNK
  50. IMODIUM [Concomitant]
     Active Substance: LOPERAMIDE HYDROCHLORIDE
     Dosage: UNK
     Route: 065
  51. MORPHINE SULFATE [Concomitant]
     Active Substance: MORPHINE SULFATE
     Dosage: UNK
     Route: 065
  52. ESTROGAN [Concomitant]
  53. METHYL TESTOSTERON [Concomitant]

REACTIONS (17)
  - Syncope [Unknown]
  - Hypoacusis [Unknown]
  - Wrist fracture [Unknown]
  - Upper limb fracture [Unknown]
  - Lip injury [Unknown]
  - Fall [Unknown]
  - Ligament sprain [Unknown]
  - Dehydration [Unknown]
  - Blood pressure decreased [Unknown]
  - Blood sodium decreased [Unknown]
  - Productive cough [Unknown]
  - COVID-19 [Unknown]
  - Sinusitis [Unknown]
  - Contusion [Unknown]
  - Burning sensation [Unknown]
  - Back pain [Unknown]
  - Headache [Unknown]
